FAERS Safety Report 17471129 (Version 2)
Quarter: 2020Q1

REPORT INFORMATION
  Report Type: Report from Study
  Country: CA (occurrence: CA)
  Receive Date: 20200227
  Receipt Date: 20200304
  Transmission Date: 20200409
  Serious: Yes (Other)
  Sender: FDA-Public Use
  Company Number: CA-NALPROPION PHARMACEUTICALS INC.-2020-009697

PATIENT

DRUGS (7)
  1. CONTRAVE [Suspect]
     Active Substance: BUPROPION HYDROCHLORIDE\NALTREXONE HYDROCHLORIDE
     Dosage: TWO TABLETS IN THE MORNING
     Route: 048
     Dates: start: 20200203, end: 20200211
  2. CONTRAVE [Suspect]
     Active Substance: BUPROPION HYDROCHLORIDE\NALTREXONE HYDROCHLORIDE
     Dosage: TWO TABLETS IN THE MORNING AND TWO TABLETS IN THE EVENING
     Route: 048
     Dates: start: 20200212
  3. CONTRAVE [Suspect]
     Active Substance: BUPROPION HYDROCHLORIDE\NALTREXONE HYDROCHLORIDE
     Indication: WEIGHT CONTROL
     Dosage: STARTED APPROX ON 01/AUG/2019 (1 DOSAGE FORMS, 1 IN 1 D)
     Route: 048
     Dates: start: 201908, end: 20190807
  4. CONTRAVE [Suspect]
     Active Substance: BUPROPION HYDROCHLORIDE\NALTREXONE HYDROCHLORIDE
     Dosage: 2 DOSAGE FORMS (1 DOSAGE FORMS, 2 IN 1 D)
     Route: 048
     Dates: start: 20190808, end: 20190814
  5. CONTRAVE [Suspect]
     Active Substance: BUPROPION HYDROCHLORIDE\NALTREXONE HYDROCHLORIDE
     Dosage: STOPPED APPROX ON 27/JAN/2020. TWO TABLETS IN THE MORNING AND TWO TABLETS IN THE EVENING
     Route: 048
     Dates: start: 20190822, end: 202001
  6. CONTRAVE [Suspect]
     Active Substance: BUPROPION HYDROCHLORIDE\NALTREXONE HYDROCHLORIDE
     Dosage: APPROX 02/FEB/2020 TWO TABLETS IN THE MORNING AND ONE TABLET IN THE EVENING
     Route: 048
     Dates: start: 20200128, end: 202002
  7. CONTRAVE [Suspect]
     Active Substance: BUPROPION HYDROCHLORIDE\NALTREXONE HYDROCHLORIDE
     Dosage: STARTED APPROX ON 01/AUG/2019. TWO TABLETS IN THE MORNING AND ONE TABLET IN THE EVENING
     Route: 048
     Dates: start: 20190815, end: 20190821

REACTIONS (8)
  - Pneumonia [Unknown]
  - Malaise [Unknown]
  - Pharyngitis streptococcal [Unknown]
  - Nausea [Unknown]
  - Headache [Unknown]
  - Ill-defined disorder [Unknown]
  - Loss of personal independence in daily activities [Unknown]
  - Drug ineffective [Unknown]

NARRATIVE: CASE EVENT DATE: 202001
